FAERS Safety Report 16785786 (Version 1)
Quarter: 2019Q3

REPORT INFORMATION
  Report Type: Spontaneous
  Country: US (occurrence: US)
  Receive Date: 20190909
  Receipt Date: 20190909
  Transmission Date: 20191005
  Serious: No
  Sender: FDA-Public Use
  Company Number: US-TARO-2019TAR00592

PATIENT
  Sex: Female
  Weight: 58.96 kg

DRUGS (6)
  1. UNSPECIFIED RECALLED EYE PRODUCT [Suspect]
     Active Substance: UNSPECIFIED INGREDIENT
     Dosage: UNK
  2. CALCIPOTRIENE. [Concomitant]
     Active Substance: CALCIPOTRIENE
     Dosage: PULSE DOSES (ON 10 DAYS, OFF 10 DAYS)
     Route: 061
     Dates: start: 20190809
  3. XIIDRA [Concomitant]
     Active Substance: LIFITEGRAST
  4. BETAMETHASONE VALERATE FOAM 0.12% [Suspect]
     Active Substance: BETAMETHASONE VALERATE
     Indication: PSORIATIC ARTHROPATHY
  5. CALCIPOTRIENE. [Concomitant]
     Active Substance: CALCIPOTRIENE
     Dosage: ^PULSE DOSING^
  6. BETAMETHASONE VALERATE FOAM 0.12% [Suspect]
     Active Substance: BETAMETHASONE VALERATE
     Indication: PSORIASIS
     Dosage: ^LIDFUL^, 2X/DAY (MORNING AND EVENING)
     Route: 061
     Dates: start: 201905

REACTIONS (4)
  - Vision blurred [Not Recovered/Not Resolved]
  - Migraine [Not Recovered/Not Resolved]
  - Product administered at inappropriate site [Unknown]
  - Sunburn [Not Recovered/Not Resolved]

NARRATIVE: CASE EVENT DATE: 2019
